FAERS Safety Report 24766937 (Version 2)
Quarter: 2025Q1

REPORT INFORMATION
  Report Type: Spontaneous
  Country: US (occurrence: US)
  Receive Date: 20241223
  Receipt Date: 20250313
  Transmission Date: 20250408
  Serious: No
  Sender: SANOFI AVENTIS
  Company Number: US-SA-2024SA376491

PATIENT
  Age: 22 Year
  Sex: Female

DRUGS (1)
  1. DUPIXENT [Suspect]
     Active Substance: DUPILUMAB
     Indication: Dermatitis atopic
     Dosage: 300 MG, QOW
     Route: 058

REACTIONS (7)
  - Eye pain [Recovered/Resolved]
  - Dry eye [Recovered/Resolved]
  - Arthralgia [Unknown]
  - Dermatitis atopic [Unknown]
  - Therapeutic response shortened [Unknown]
  - Product dose omission in error [Unknown]
  - Injection site swelling [Unknown]
